FAERS Safety Report 20837285 (Version 1)
Quarter: 2022Q2

REPORT INFORMATION
  Report Type: Spontaneous
  Country: IL (occurrence: IL)
  Receive Date: 20220517
  Receipt Date: 20220517
  Transmission Date: 20220720
  Serious: Yes (Life-Threatening, Other)
  Sender: FDA-Public Use
  Company Number: IL-CELLTRION INC.-2022IL006505

PATIENT

DRUGS (7)
  1. RITUXIMAB [Suspect]
     Active Substance: RITUXIMAB
     Indication: Central nervous system lymphoma
     Dosage: 375 MG/M2, CYCLIC ON DAYS 1, 15 AND 28
     Route: 042
  2. METHOTREXATE [Suspect]
     Active Substance: METHOTREXATE
     Indication: Central nervous system lymphoma
     Dosage: 5 GRAM PER SQUARE METRE, CYCLIC DAYS 2, 15 AND 29
     Route: 042
  3. METHOTREXATE [Suspect]
     Active Substance: METHOTREXATE
     Dosage: 3.5 G/M2 FOR PATIENTS } 60 Y, CYCLIC DAYS 2, 15 AND 29
     Route: 042
  4. PROCARBAZINE [Suspect]
     Active Substance: PROCARBAZINE
     Indication: Central nervous system lymphoma
     Dosage: 100 MG/M2, CYCLIC ON DAYS 3-9
     Route: 048
  5. PROCARBAZINE [Suspect]
     Active Substance: PROCARBAZINE
     Dosage: 60 MG/M2 CYCLIC FOR PATIENTS } 60 Y
     Route: 048
  6. LOMUSTINE [Suspect]
     Active Substance: LOMUSTINE
     Indication: Central nervous system lymphoma
     Dosage: 60 MG/M2, CYCLIC ON DAY 2
     Route: 048
  7. LOMUSTINE [Suspect]
     Active Substance: LOMUSTINE
     Dosage: 40 MG/M2 FOR PATIENTS } 60 Y, CYCLIC ON DAY 2
     Route: 048

REACTIONS (10)
  - Renal injury [Unknown]
  - Intestinal pseudo-obstruction [Unknown]
  - Psychotic disorder [Unknown]
  - Mania [Unknown]
  - Infection [Unknown]
  - Cytopenia [Unknown]
  - Cerebrovascular accident [Unknown]
  - Toxicity to various agents [Unknown]
  - Chest pain [Unknown]
  - Therapeutic response decreased [Unknown]
